FAERS Safety Report 8779873 (Version 1)
Quarter: 2012Q4

REPORT INFORMATION
  Report Type: 
  Country: US (occurrence: US)
  Receive Date: 20120912
  Receipt Date: 20120912
  Transmission Date: 20130627
  Serious: No
  Sender: FDA-Public Use
  Company Number: US-VERTEX PHARMACEUTICAL INC.-AE-2012-004926

PATIENT

DRUGS (9)
  1. INCIVEK [Suspect]
     Indication: HEPATITIS C
     Route: 048
     Dates: start: 20120131
  2. RIBAVIRIN [Concomitant]
     Indication: HEPATITIS C
     Dates: start: 20120131
  3. PEGASYS [Concomitant]
     Indication: HEPATITIS C
     Route: 058
     Dates: start: 20120131
  4. EPZICOM [Concomitant]
  5. NORVIR [Concomitant]
  6. AITAZANAVIR [Concomitant]
  7. VIREAD [Concomitant]
  8. DEPAKOTE [Concomitant]
  9. BACTRIUM/ TRIMETOPRIM SULFAMETOXAZOL [Concomitant]

REACTIONS (9)
  - Headache [Not Recovered/Not Resolved]
  - Trichorrhexis [Not Recovered/Not Resolved]
  - Night sweats [Not Recovered/Not Resolved]
  - Off label use [Unknown]
  - Blister [Not Recovered/Not Resolved]
  - Nausea [Not Recovered/Not Resolved]
  - Dysgeusia [Not Recovered/Not Resolved]
  - Pruritus [Not Recovered/Not Resolved]
  - Diarrhoea [Unknown]
